FAERS Safety Report 5876840-9 (Version None)
Quarter: 2008Q3

REPORT INFORMATION
  Report Type: 
  Country: None (occurrence: None)
  Receive Date: 20080910
  Receipt Date: 20080908
  Transmission Date: 20090109
  Serious: Yes (Death)
  Sender: FDA-Public Use
  Company Number: AU-ASTRAZENECA-2008AP05209

PATIENT
  Age: 13 Year
  Sex: Male

DRUGS (3)
  1. SYMBICORT [Suspect]
     Indication: ASTHMA
     Route: 055
  2. SYMBICORT [Suspect]
     Route: 055
  3. PREDNISOLONE [Concomitant]
     Indication: ASTHMA
     Route: 048

REACTIONS (1)
  - RESPIRATORY ARREST [None]
